FAERS Safety Report 15100265 (Version 1)
Quarter: 2018Q3

REPORT INFORMATION
  Report Type: Report from Study
  Country: FR (occurrence: FR)
  Receive Date: 20180703
  Receipt Date: 20180703
  Transmission Date: 20181010
  Serious: Yes (Hospitalization, Other)
  Sender: FDA-Public Use
  Company Number: FR-BRISTOL-MYERS SQUIBB COMPANY-BMS-2017-084266

PATIENT
  Age: 77 Year
  Sex: Male

DRUGS (2)
  1. NIVOLUMAB [Suspect]
     Active Substance: NIVOLUMAB
     Indication: LUNG NEOPLASM MALIGNANT
     Dosage: 204 MG, Q2WK
     Route: 042
     Dates: start: 20170731
  2. XATRAL                             /00975301/ [Concomitant]
     Active Substance: ALFUZOSIN
     Indication: PRODUCT USED FOR UNKNOWN INDICATION
     Route: 065

REACTIONS (12)
  - Limb deformity [Recovering/Resolving]
  - Cough [Unknown]
  - Bronchitis [Not Recovered/Not Resolved]
  - Interstitial lung disease [Not Recovered/Not Resolved]
  - Asthenia [Not Recovered/Not Resolved]
  - Oxygen saturation decreased [Not Recovered/Not Resolved]
  - Bone pain [Recovering/Resolving]
  - Dysuria [Recovering/Resolving]
  - General physical health deterioration [Recovering/Resolving]
  - Malignant neoplasm progression [Not Recovered/Not Resolved]
  - Autoimmune lung disease [Not Recovered/Not Resolved]
  - Bronchial disorder [Unknown]

NARRATIVE: CASE EVENT DATE: 20170814
